FAERS Safety Report 8791454 (Version 2)
Quarter: 2013Q1

REPORT INFORMATION
  Report Type: Spontaneous
  Country: US (occurrence: None)
  Receive Date: 20120911
  Receipt Date: 20121219
  Transmission Date: 20140127
  Serious: Yes (Life-Threatening, Hospitalization)
  Sender: FDA-Public Use
  Company Number: ACO_31820_2012

PATIENT
  Age: 57 Year
  Sex: Female
  Weight: 62.6 kg

DRUGS (16)
  1. AMPYRA (DALFAMPRIDINE) TABLET, 10 MG [Suspect]
     Indication: GAIT DISTURBANCE
     Route: 048
     Dates: start: 20101011
  2. COPAXONE [Concomitant]
  3. WELLBUTRIN (BUPROPION HYDROCHLORIDE) [Concomitant]
  4. SYNTHROID (LEVOTHYROXINE SODIUM) [Concomitant]
  5. AMITRIPTYLINE (AMITRIPTYLINE) [Concomitant]
  6. VITAMIN C [Concomitant]
  7. VITAMIN B12 (CYANOCOBALAMIN) [Concomitant]
  8. VITAMIN D (ERGOCALCIFEROL) [Concomitant]
  9. CALCIUM (CALCIUM) [Concomitant]
  10. COQ 10 (UBIDECARENONE) [Concomitant]
  11. FISH OIL (FISH OIL) [Concomitant]
  12. MULTIVITAMIN (VITAMIN NOS) [Concomitant]
  13. AVAPRO (IRBESARTAN) [Concomitant]
  14. ESCITALOPRAM (ESCITALOPRAM) [Concomitant]
  15. LOSARTAN (LOSARTAN POTASSIUM) [Concomitant]
  16. ALL OTHER THERAPEUTIC PRODUCTS [Concomitant]

REACTIONS (13)
  - Thrombotic thrombocytopenic purpura [None]
  - Mental status changes [None]
  - Gastroenteritis [None]
  - Anaemia [None]
  - Urinary tract infection [None]
  - Metabolic acidosis [None]
  - Abnormal behaviour [None]
  - Delusion [None]
  - Hallucination [None]
  - Confusional state [None]
  - Lethargy [None]
  - Fatigue [None]
  - Malaise [None]
